FAERS Safety Report 14199391 (Version 1)
Quarter: 2017Q4

REPORT INFORMATION
  Report Type: Spontaneous
  Country: US (occurrence: None)
  Receive Date: 20171116
  Receipt Date: 20171116
  Transmission Date: 20180321
  Serious: No
  Sender: FDA-Public Use
  Company Number: None

PATIENT
  Age: 40 Year
  Sex: Female

DRUGS (1)
  1. GILENYA [Suspect]
     Active Substance: FINGOLIMOD HYDROCHLORIDE
     Indication: MULTIPLE SCLEROSIS
     Dosage: 0.5MG EVERY 2-3 DAYS ORAL
     Route: 048
     Dates: start: 20160804

REACTIONS (2)
  - White blood cell count decreased [None]
  - Intentional product use issue [None]

NARRATIVE: CASE EVENT DATE: 20161115
